FAERS Safety Report 9136767 (Version 1)
Quarter: 2013Q1

REPORT INFORMATION
  Report Type: Report from Study
  Country: UG (occurrence: UG)
  Receive Date: 20130304
  Receipt Date: 20130304
  Transmission Date: 20140127
  Serious: Yes (Life-Threatening)
  Sender: FDA-Public Use
  Company Number: UG-ABBOTT-13P-165-1057357-00

PATIENT
  Sex: Female

DRUGS (3)
  1. ALUVIA [Suspect]
     Indication: HIV INFECTION
     Route: 048
     Dates: start: 20110427
  2. COTRIMOXAZOLE [Concomitant]
     Indication: PRODUCT USED FOR UNKNOWN INDICATION
     Dates: start: 20070816
  3. RALTEGRAVIR [Concomitant]
     Indication: HIV INFECTION
     Dates: start: 20110427

REACTIONS (1)
  - Intestinal obstruction [Recovered/Resolved]
